FAERS Safety Report 10003796 (Version 1)
Quarter: 2014Q1

REPORT INFORMATION
  Report Type: Report from Study
  Country: IT (occurrence: IT)
  Receive Date: 20140312
  Receipt Date: 20140312
  Transmission Date: 20141002
  Serious: Yes (Death)
  Sender: FDA-Public Use
  Company Number: IT-BAXTER-2014BAX012740

PATIENT
  Age: 71 Year
  Sex: 0

DRUGS (6)
  1. RITUXIMAB [Suspect]
     Indication: CENTRAL NERVOUS SYSTEM LYMPHOMA
     Dosage: ON DAY 0
     Route: 042
  2. ETOPOSIDE [Suspect]
     Indication: CENTRAL NERVOUS SYSTEM LYMPHOMA
     Dosage: AS A 1 HOUR INFUSION ON DAY 1
     Route: 042
  3. ACETAMINOPHEN [Suspect]
     Indication: PRODUCT USED FOR UNKNOWN INDICATION
     Route: 048
  4. DIPHENHYDRAMINE [Suspect]
     Indication: PRODUCT USED FOR UNKNOWN INDICATION
     Route: 042
  5. HOLOXAN [Suspect]
     Indication: CENTRAL NERVOUS SYSTEM LYMPHOMA
     Dosage: 2 G/M2 AS A 2 HOUR IV INFUSION ON DAYS 1-3
     Route: 042
  6. UROMITEXAN [Suspect]
     Indication: CYSTITIS HAEMORRHAGIC
     Dosage: ON DAYS 1-3 DIVIDED INTO FOUR DOSES

REACTIONS (1)
  - Disease progression [Fatal]
